FAERS Safety Report 18603342 (Version 1)
Quarter: 2020Q4

REPORT INFORMATION
  Report Type: Spontaneous
  Country: FR (occurrence: FR)
  Receive Date: 20201210
  Receipt Date: 20201210
  Transmission Date: 20210114
  Serious: Yes (Hospitalization)
  Sender: FDA-Public Use
  Company Number: FR-JNJFOC-20201207149

PATIENT
  Age: 77 Year
  Sex: Male

DRUGS (6)
  1. PLAVIX [Concomitant]
     Active Substance: CLOPIDOGREL BISULFATE
  2. TRIATEC [RAMIPRIL] [Concomitant]
     Active Substance: RAMIPRIL
  3. SPORANOX [Suspect]
     Active Substance: ITRACONAZOLE
     Indication: BRONCHOPULMONARY ASPERGILLOSIS
     Route: 048
  4. FLECAINE [Concomitant]
     Active Substance: FLECAINIDE
  5. FORADIL [Concomitant]
     Active Substance: FORMOTEROL FUMARATE
  6. SPIRIVA [Concomitant]
     Active Substance: TIOTROPIUM BROMIDE MONOHYDRATE

REACTIONS (4)
  - Decreased appetite [Unknown]
  - Weight decreased [Unknown]
  - Diarrhoea [Unknown]
  - Constipation [Unknown]
